FAERS Safety Report 4350540-9 (Version None)
Quarter: 2004Q2

REPORT INFORMATION
  Report Type: 
  Country: None (occurrence: None)
  Receive Date: 20040427
  Receipt Date: 20040419
  Transmission Date: 20050107
  Serious: Yes (Other)
  Sender: FDA-Public Use
  Company Number: 2002134163US

PATIENT
  Sex: Male

DRUGS (5)
  1. BEXTRA [Suspect]
     Dosage: 20 MG, QD
  2. PRINIVIL [Concomitant]
  3. CARDIZEM [Concomitant]
  4. PRILOSEC [Concomitant]
  5. ALLEGRA-D [Concomitant]

REACTIONS (1)
  - ERYTHEMA MULTIFORME [None]
